FAERS Safety Report 15583436 (Version 1)
Quarter: 2018Q4

REPORT INFORMATION
  Report Type: Spontaneous
  Country: US (occurrence: US)
  Receive Date: 20181105
  Receipt Date: 20181105
  Transmission Date: 20190205
  Serious: Yes (Other)
  Sender: FDA-Public Use
  Company Number: None

PATIENT
  Age: 31 Year
  Sex: Male
  Weight: 97.6 kg

DRUGS (5)
  1. REMICADE [Suspect]
     Active Substance: INFLIXIMAB
     Indication: PYREXIA
     Dosage: ?          OTHER FREQUENCY:ONE TIME INFUSION;?
     Route: 041
     Dates: start: 20181102, end: 20181102
  2. BENADRYL IVP [Concomitant]
     Dates: start: 20181102, end: 20181102
  3. HYDROCORTISONE 100 MG IVP [Concomitant]
     Dates: start: 20181102, end: 20181102
  4. ODANSETRON 4 MG [Concomitant]
     Dates: start: 20181102, end: 20181102
  5. REMICADE [Suspect]
     Active Substance: INFLIXIMAB
     Indication: AUTOINFLAMMATORY DISEASE
     Dosage: ?          OTHER FREQUENCY:ONE TIME INFUSION;?
     Route: 041
     Dates: start: 20181102, end: 20181102

REACTIONS (4)
  - Chest discomfort [None]
  - Back pain [None]
  - Nausea [None]
  - Vomiting [None]

NARRATIVE: CASE EVENT DATE: 20181102
